FAERS Safety Report 10238432 (Version 1)
Quarter: 2014Q2

REPORT INFORMATION
  Report Type: Spontaneous
  Country: US (occurrence: None)
  Receive Date: 20140613
  Receipt Date: 20140613
  Transmission Date: 20141212
  Serious: No
  Sender: FDA-Public Use
  Company Number: None

PATIENT
  Age: 55 Year
  Sex: Female
  Weight: 37.3 kg

DRUGS (1)
  1. CIMZIA 200MG [Suspect]
     Dosage: 400MG  Q 4 WEEKS  SUB-Q
     Route: 058
     Dates: start: 20120228

REACTIONS (1)
  - Tuberculin test positive [None]
